FAERS Safety Report 9046938 (Version 1)
Quarter: 2013Q1

REPORT INFORMATION
  Report Type: Spontaneous
  Country: US (occurrence: US)
  Receive Date: 20130204
  Receipt Date: 20130204
  Transmission Date: 20140127
  Serious: Yes (Other)
  Sender: FDA-Public Use
  Company Number: US-JNJFOC-20130113595

PATIENT
  Age: 61 None
  Sex: Female
  Weight: 61.69 kg

DRUGS (7)
  1. REMICADE [Suspect]
     Indication: OSTEOARTHRITIS
     Dosage: TREATMENT FOR 10 YEARS
     Route: 042
     Dates: end: 201206
  2. REMICADE [Suspect]
     Indication: RHEUMATOID ARTHRITIS
     Dosage: TREATMENT FOR 10 YEARS
     Route: 042
     Dates: end: 201206
  3. METHOTREXATE [Suspect]
     Indication: PRODUCT USED FOR UNKNOWN INDICATION
     Route: 065
  4. DILANTIN [Concomitant]
     Route: 065
  5. TRAZODONE [Concomitant]
     Route: 065
  6. KLONOPIN [Concomitant]
     Route: 065
  7. ALL OTHER THERAPEUTICS [Concomitant]
     Indication: BLOOD PRESSURE
     Route: 065

REACTIONS (2)
  - Tuberculosis [Recovering/Resolving]
  - Deafness [Not Recovered/Not Resolved]
